FAERS Safety Report 15396205 (Version 1)
Quarter: 2018Q3

REPORT INFORMATION
  Report Type: Spontaneous
  Country: US (occurrence: US)
  Receive Date: 20180912
  Receipt Date: 20180912
  Transmission Date: 20181010
  Serious: No
  Sender: FDA-Public Use
  Company Number: None

PATIENT
  Age: 76 Year
  Sex: Female
  Weight: 61.23 kg

DRUGS (4)
  1. ONE A DAY MULTI VIT [Concomitant]
  2. THYROID [Concomitant]
     Active Substance: LEVOTHYROXINE\LIOTHYRONINE
  3. TOPROL XL [Suspect]
     Active Substance: METOPROLOL SUCCINATE
     Indication: HYPERTENSION
     Dosage: ?          QUANTITY:1 DF DOSAGE FORM;?
     Route: 048
  4. HYDROCODONE [Concomitant]
     Active Substance: HYDROCODONE

REACTIONS (7)
  - Dizziness [None]
  - Joint swelling [None]
  - Gingival swelling [None]
  - Bladder dilatation [None]
  - Asthenia [None]
  - Swelling [None]
  - Mouth swelling [None]

NARRATIVE: CASE EVENT DATE: 201808
